FAERS Safety Report 10224449 (Version 1)
Quarter: 2014Q2

REPORT INFORMATION
  Report Type: Spontaneous
  Country: US (occurrence: US)
  Receive Date: 20140609
  Receipt Date: 20140609
  Transmission Date: 20141212
  Serious: No
  Sender: FDA-Public Use
  Company Number: US-PFIZER INC-2014156648

PATIENT
  Age: 72 Year
  Sex: Female
  Weight: 72.56 kg

DRUGS (5)
  1. LYRICA [Suspect]
     Indication: ARTHRALGIA
     Dosage: 50 MG, DAILY
     Dates: start: 20140529
  2. LYRICA [Suspect]
     Indication: PAIN IN EXTREMITY
  3. DUTOPROLOL [Concomitant]
     Dosage: UNK
  4. MELOXICAM [Concomitant]
     Dosage: 60 MG, UNK
  5. OMEPRAZOLE [Concomitant]
     Dosage: 40 MG, UNK

REACTIONS (4)
  - Vomiting [Unknown]
  - Nausea [Unknown]
  - Dizziness [Unknown]
  - Disorientation [Unknown]
